FAERS Safety Report 20382650 (Version 1)
Quarter: 2022Q1

REPORT INFORMATION
  Report Type: Spontaneous
  Country: US (occurrence: None)
  Receive Date: 20220126
  Receipt Date: 20220126
  Transmission Date: 20220424
  Serious: Yes (Disabling)
  Sender: FDA-Public Use
  Company Number: None

PATIENT
  Age: 23 Year
  Sex: Male
  Weight: 83.25 kg

DRUGS (2)
  1. FINASTERIDE [Suspect]
     Active Substance: FINASTERIDE
     Indication: Alopecia
     Dates: start: 20211103, end: 20220108
  2. FINASTERIDE [Suspect]
     Active Substance: FINASTERIDE
     Indication: Prophylaxis

REACTIONS (14)
  - Loss of libido [None]
  - Erectile dysfunction [None]
  - Penis disorder [None]
  - Sensory loss [None]
  - Anxiety [None]
  - Suicidal ideation [None]
  - Anhedonia [None]
  - Defaecation disorder [None]
  - Weight decreased [None]
  - Myalgia [None]
  - Skin disorder [None]
  - Dry eye [None]
  - Decreased appetite [None]
  - Superficial vein prominence [None]

NARRATIVE: CASE EVENT DATE: 20220108
